FAERS Safety Report 5476191-0 (Version None)
Quarter: 2007Q4

REPORT INFORMATION
  Report Type: 
  Country: None (occurrence: None)
  Receive Date: 20071003
  Receipt Date: 20070925
  Transmission Date: 20080405
  Serious: Yes (Other)
  Sender: FDA-Public Use
  Company Number: US-TYCO HEALTHCARE/MALLINCKRODT-T200701166

PATIENT

DRUGS (8)
  1. OPTIRAY 300 [Suspect]
     Dosage: UNK, SINGLE
     Route: 042
     Dates: start: 20070605, end: 20070605
  2. ANGIOMAX [Suspect]
     Indication: PERCUTANEOUS CORONARY INTERVENTION
     Dosage: 0.75 MG/KG, BOLUS
     Route: 040
     Dates: start: 20070605, end: 20070605
  3. ANGIOMAX [Suspect]
     Dosage: 1.75 MG/KG, HR
     Route: 042
     Dates: start: 20070605, end: 20070605
  4. FENTANYL [Suspect]
     Dosage: 50 UG, SINGLE
     Route: 042
     Dates: start: 20070605
  5. FENTANYL [Suspect]
     Dosage: UNK, SINGLE
     Route: 042
     Dates: start: 20070605
  6. VERSED [Suspect]
     Dates: start: 20070605
  7. PLAVIX [Concomitant]
  8. ASPIRIN [Concomitant]

REACTIONS (1)
  - ANAPHYLACTIC SHOCK [None]
